FAERS Safety Report 8257693-0 (Version None)
Quarter: 2012Q2

REPORT INFORMATION
  Report Type: 
  Country: None (occurrence: None)
  Receive Date: 20120403
  Receipt Date: 20120321
  Transmission Date: 20120825
  Serious: Yes (Other)
  Sender: FDA-Public Use
  Company Number: IT-MYLANLABS-2012S1006373

PATIENT
  Age: 15 Year
  Sex: Female

DRUGS (2)
  1. ETOPOSIDE [Suspect]
     Indication: NEUROBLASTOMA
     Dosage: RECEIVED 4 COURSES INITIALLY; THEN 14 COURSES WHEN NEUROBLASTOMA RELAPSED
     Route: 065
  2. CARBOPLATIN [Suspect]
     Indication: NEUROBLASTOMA
     Dosage: RECEIVED 4 COURSES INITIALLY; THEN 14 COURSES WHEN NEUROBLASTOMA RELAPSED
     Route: 065

REACTIONS (6)
  - MUCOSAL INFLAMMATION [None]
  - GASTROOESOPHAGEAL REFLUX DISEASE [None]
  - HAEMATEMESIS [None]
  - BARRETT'S OESOPHAGUS [None]
  - VOMITING [None]
  - OESOPHAGITIS [None]
